FAERS Safety Report 23568913 (Version 1)
Quarter: 2024Q1

REPORT INFORMATION
  Report Type: Report from Study
  Country: US (occurrence: US)
  Receive Date: 20240227
  Receipt Date: 20240227
  Transmission Date: 20240409
  Serious: No
  Sender: FDA-Public Use
  Company Number: US-ORG100014127-2023000709

PATIENT
  Age: 62 Year
  Sex: Female

DRUGS (12)
  1. METOPIRONE [Suspect]
     Active Substance: METYRAPONE
     Indication: Pituitary-dependent Cushing^s syndrome
     Dosage: TAKE 1 CAPSULE BY MOUTH FOUR TIMES DAILY
     Dates: start: 20230531, end: 202306
  2. METOPIRONE [Suspect]
     Active Substance: METYRAPONE
     Indication: Pituitary-dependent Cushing^s syndrome
     Dosage: 2 CAPSULES A DAY
     Dates: start: 202306
  3. METOPIRONE [Suspect]
     Active Substance: METYRAPONE
     Indication: Pituitary-dependent Cushing^s syndrome
     Dosage: 250 MG: 01 CAPSULE 04 TIMES DAILY
     Route: 048
  4. BUPROPION [Concomitant]
     Active Substance: BUPROPION
     Indication: Product used for unknown indication
  5. COPAXONE [Concomitant]
     Active Substance: GLATIRAMER ACETATE
     Indication: Product used for unknown indication
  6. FISH OIL CAP 1000MG [Concomitant]
     Indication: Product used for unknown indication
  7. GNP VIT B-12 TAB 500MCG [Concomitant]
     Indication: Product used for unknown indication
  8. IBUPROFEN TAB 600MG [Concomitant]
     Indication: Product used for unknown indication
  9. NEURONTIN CAP 300MG [Concomitant]
     Indication: Product used for unknown indication
  10. VITAMIN C TAB 250MG [Concomitant]
     Indication: Product used for unknown indication
  11. VITAMIN D TAB 1000UNIT [Concomitant]
     Indication: Product used for unknown indication
  12. HYDROCORTISONE [Concomitant]
     Active Substance: HYDROCORTISONE
     Indication: Product used for unknown indication

REACTIONS (3)
  - Ageusia [Recovering/Resolving]
  - Diarrhoea [Recovering/Resolving]
  - Off label use [Not Recovered/Not Resolved]

NARRATIVE: CASE EVENT DATE: 20230531
